FAERS Safety Report 19055889 (Version 1)
Quarter: 2021Q1

REPORT INFORMATION
  Report Type: Spontaneous
  Country: US (occurrence: US)
  Receive Date: 20210324
  Receipt Date: 20210324
  Transmission Date: 20210420
  Serious: Yes (Other)
  Sender: FDA-Public Use
  Company Number: US-PFIZER INC-2021312675

PATIENT
  Sex: Female

DRUGS (1)
  1. PROTONIX [Suspect]
     Active Substance: PANTOPRAZOLE SODIUM
     Dosage: UNK

REACTIONS (6)
  - Oesophageal stenosis [Unknown]
  - Ulcer haemorrhage [Unknown]
  - Vocal cord paralysis [Unknown]
  - Fracture [Unknown]
  - Fall [Unknown]
  - Hip fracture [Unknown]
